FAERS Safety Report 20814034 (Version 2)
Quarter: 2022Q2

REPORT INFORMATION
  Report Type: Spontaneous
  Country: CN (occurrence: CN)
  Receive Date: 20220511
  Receipt Date: 20220519
  Transmission Date: 20220721
  Serious: Yes (Other)
  Sender: FDA-Public Use
  Company Number: CN-TRIS PHARMA, INC.-22CN010198

PATIENT

DRUGS (4)
  1. LEVETIRACETAM [Suspect]
     Active Substance: LEVETIRACETAM
     Indication: Petit mal epilepsy
     Dosage: MAXIMUM DOSE 37.5 MILLIGRAM PER KILOGRAM, QD
  2. LAMOTRIGINE [Suspect]
     Active Substance: LAMOTRIGINE
     Indication: Petit mal epilepsy
     Dosage: 6.25 MILLIGRAM PER KILOGRAM, QD
  3. PERAMPANEL [Suspect]
     Active Substance: PERAMPANEL
     Indication: Petit mal epilepsy
     Dosage: 2 MILLIGRAM, QD
  4. VALPROIC ACID [Suspect]
     Active Substance: VALPROIC ACID
     Indication: Petit mal epilepsy
     Dosage: 31.25 MILLIGRAM PER KILOGRAM, QD

REACTIONS (7)
  - Petit mal epilepsy [Not Recovered/Not Resolved]
  - Learning disorder [Unknown]
  - Attention deficit hyperactivity disorder [Unknown]
  - Memory impairment [Unknown]
  - Drug resistance [Unknown]
  - Off label use [Unknown]
  - Drug ineffective for unapproved indication [Unknown]
